FAERS Safety Report 25441095 (Version 1)
Quarter: 2025Q2

REPORT INFORMATION
  Report Type: Spontaneous
  Country: US (occurrence: US)
  Receive Date: 20250616
  Receipt Date: 20250616
  Transmission Date: 20250716
  Serious: No
  Sender: UCB
  Company Number: US-UCBSA-2025015497

PATIENT
  Sex: Female
  Weight: 110 kg

DRUGS (1)
  1. BIMZELX [Suspect]
     Active Substance: BIMEKIZUMAB-BKZX
     Indication: Product used for unknown indication

REACTIONS (4)
  - Rash [Recovering/Resolving]
  - Erythema [Unknown]
  - Swelling face [Unknown]
  - Rash maculo-papular [Unknown]

NARRATIVE: CASE EVENT DATE: 20250101
